FAERS Safety Report 15414638 (Version 2)
Quarter: 2019Q1

REPORT INFORMATION
  Report Type: Spontaneous
  Country: CA (occurrence: CA)
  Receive Date: 20180921
  Receipt Date: 20190114
  Transmission Date: 20190417
  Serious: Yes (Life-Threatening, Hospitalization, Disabling)
  Sender: FDA-Public Use
  Company Number: CA-OTSUKA-2018_030961

PATIENT
  Age: 41 Year
  Sex: Male
  Weight: 99.79 kg

DRUGS (3)
  1. ABILIFY MAINTENA [Suspect]
     Active Substance: ARIPIPRAZOLE
     Indication: SCHIZOPHRENIA
     Dosage: 400MG, UNK
     Route: 030
     Dates: start: 20100702
  2. CLOPIXOL [Suspect]
     Active Substance: ZUCLOPENTHIXOL
     Indication: SCHIZOPHRENIA
     Dosage: 400 MG, QM
     Route: 030
     Dates: start: 20100702
  3. RISPERIDONE. [Concomitant]
     Active Substance: RISPERIDONE
     Indication: PRODUCT USED FOR UNKNOWN INDICATION
     Dosage: UNK
     Route: 065

REACTIONS (16)
  - Suicidal ideation [Unknown]
  - Vein disorder [Unknown]
  - Skin mass [Unknown]
  - Libido decreased [Unknown]
  - Priapism [Unknown]
  - Lung disorder [Unknown]
  - Skin striae [Unknown]
  - Restlessness [Not Recovered/Not Resolved]
  - Breast mass [Unknown]
  - General physical health deterioration [Not Recovered/Not Resolved]
  - Burning sensation [Not Recovered/Not Resolved]
  - Hyperthermia [Unknown]
  - Depression [Unknown]
  - Sexual dysfunction [Not Recovered/Not Resolved]
  - Neuropathy peripheral [Not Recovered/Not Resolved]
  - Hypothermia [Unknown]
